FAERS Safety Report 16918784 (Version 10)
Quarter: 2022Q2

REPORT INFORMATION
  Report Type: Spontaneous
  Country: GB (occurrence: GB)
  Receive Date: 20191015
  Receipt Date: 20220627
  Transmission Date: 20220721
  Serious: Yes (Other)
  Sender: FDA-Public Use
  Company Number: None

PATIENT
  Sex: Male

DRUGS (38)
  1. AZATHIOPRINE [Suspect]
     Active Substance: AZATHIOPRINE
     Indication: Colitis
     Dosage: 75 MILLIGRAM, QD (MORNING, LUNCH AND TEA TIME (WITH OR JUST AFTER FOOD)
     Route: 048
  2. AZATHIOPRINE [Suspect]
     Active Substance: AZATHIOPRINE
     Dosage: 25 MILLIGRAM, Q8H, 25 MG, QD (MORNING, LUNCH AND TEA TIME
     Route: 048
  3. AZATHIOPRINE [Suspect]
     Active Substance: AZATHIOPRINE
     Dosage: 25 MILLIGRAM, QD (MORNING, LUNCH AND TEA TIME (WITH OR JUST AFTER FOOD/MEAL)
     Route: 065
  4. AZATHIOPRINE [Suspect]
     Active Substance: AZATHIOPRINE
     Dosage: 75 MILLIGRAM, QD (MORNING, LUNCH AND TEA TIME (WITH OR JUST AFTER FOOD/MEAL)
     Route: 065
  5. AZATHIOPRINE [Suspect]
     Active Substance: AZATHIOPRINE
     Dosage: 25 MILLIGRAM, QD (MORNING, LUNCH AND TEA TIME (WITH OR JUST AFTER FOOD/MEAL)
     Route: 048
  6. AZATHIOPRINE [Suspect]
     Active Substance: AZATHIOPRINE
     Dosage: 75 MILLIGRAM, Q8H (75 MG, Q8H (MORNING, LUNCH AND TEA TIME (WITH
     Route: 048
  7. DIHYDROCODEINE BITARTRATE [Suspect]
     Active Substance: DIHYDROCODEINE BITARTRATE
     Indication: Pain
     Dosage: 60 MILLIGRAM, PRN
     Route: 065
  8. DIHYDROCODEINE BITARTRATE [Suspect]
     Active Substance: DIHYDROCODEINE BITARTRATE
     Dosage: 2 DOSAGE FORM, Q6H (2 DF, Q6H, AS NECESSARY, TWO TO BE TAKEN 4 TIMES/DAY IF REQUIRED )
     Route: 048
  9. DIHYDROCODEINE BITARTRATE [Suspect]
     Active Substance: DIHYDROCODEINE BITARTRATE
     Dosage: 60 MILLIGRAM, QD ( ONCE A DAY)
     Route: 048
  10. DIHYDROCODEINE BITARTRATE [Suspect]
     Active Substance: DIHYDROCODEINE BITARTRATE
     Dosage: 60 MILLIGRAM, Q6H, (60 MG, Q6H TWO TO BE TAKEN FOUR TIMES A DAY IF REQUIRED)
     Route: 048
  11. DIHYDROCODEINE BITARTRATE [Suspect]
     Active Substance: DIHYDROCODEINE BITARTRATE
     Dosage: 240 MILLIGRAM, Q6H, (240 MG, Q6H, FOUR TIMES DAILY WITH OR
     Route: 048
  12. DIHYDROCODEINE BITARTRATE [Suspect]
     Active Substance: DIHYDROCODEINE BITARTRATE
     Dosage: 60 MILLIGRAM, QID (FOUR TIMES DAILY.WITH OR JUST AFTER FOOD/MEAL)
     Route: 048
  13. DIHYDROCODEINE BITARTRATE [Suspect]
     Active Substance: DIHYDROCODEINE BITARTRATE
     Dosage: 2 DOSAGE FORM, (AS NECESSARY,TWO TO BE TAKEN FOUR TIMES A DAY IF REQUIRED. RECEIVE
     Route: 065
  14. DIHYDROCODEINE BITARTRATE [Suspect]
     Active Substance: DIHYDROCODEINE BITARTRATE
     Dosage: 60 MILLIGRAM, PRN
     Route: 065
  15. DIHYDROCODEINE BITARTRATE [Suspect]
     Active Substance: DIHYDROCODEINE BITARTRATE
     Dosage: 60 MILLIGRAM, QD (ONCE A DAY)
     Route: 065
  16. DIHYDROCODEINE BITARTRATE [Suspect]
     Active Substance: DIHYDROCODEINE BITARTRATE
     Dosage: 240 MILLIGRAM, QID  (FOUR TIMES DAILY. WITH OR JUST AFTER FOOD/MEAL)
     Route: 065
  17. DIHYDROCODEINE BITARTRATE [Suspect]
     Active Substance: DIHYDROCODEINE BITARTRATE
     Dosage: 8 DOSAGE FORM, QD (8 DF, QD), 2 DOSAGE FORM, AS NECESSARY, 2 TO BE TAKEN 4
     Route: 048
  18. DIHYDROCODEINE BITARTRATE [Suspect]
     Active Substance: DIHYDROCODEINE BITARTRATE
     Dosage: 240 MILLIGRAM, Q6H, (FOUR TIMES DAILY. WITH OR JUST AFTER FOOD/MEAL60
     Route: 048
  19. DIHYDROCODEINE BITARTRATE [Suspect]
     Active Substance: DIHYDROCODEINE BITARTRATE
     Dosage: 8 DOSAGE FORM, Q4H (8 DF, Q4H (TWO TO BE TAKEN FOUR TIMES A DAY IF
     Route: 048
  20. ESCITALOPRAM [Suspect]
     Active Substance: ESCITALOPRAM OXALATE
     Indication: Product used for unknown indication
     Dosage: 10 MILLIGRAM, AM/QD (DAILY,MORNING)
     Route: 048
  21. ESCITALOPRAM [Suspect]
     Active Substance: ESCITALOPRAM OXALATE
     Dosage: 10 MILLIGRAM, AM (DAILY,MORNING)
     Route: 065
  22. MIRTAZAPINE [Suspect]
     Active Substance: MIRTAZAPINE
     Indication: Product used for unknown indication
     Dosage: 30 MILLIGRAM, HS/QD (30 MILLIGRAM, DAILY, NIGHT)
     Route: 048
  23. OLANZAPINE [Suspect]
     Active Substance: OLANZAPINE
     Indication: Product used for unknown indication
     Dosage: 10 MILLIGRAM, QD, PRN (10 MG, QD)
     Route: 048
  24. OLANZAPINE [Suspect]
     Active Substance: OLANZAPINE
     Dosage: 5 MILLIGRAM, QD (ONCE A DAY)
     Route: 048
  25. OLANZAPINE [Suspect]
     Active Substance: OLANZAPINE
     Dosage: 5 MILLIGRAM, QD (ONCE A DAY)
     Route: 065
  26. OLANZAPINE [Suspect]
     Active Substance: OLANZAPINE
     Dosage: 10 MILLIGRAM, QD (10 UNK)
     Route: 065
  27. PROMETHAZINE HYDROCHLORIDE [Suspect]
     Active Substance: PROMETHAZINE HYDROCHLORIDE
     Indication: Product used for unknown indication
     Dosage: 25 MILLIGRAM, HS/QD (AT NIGHT)
     Route: 048
  28. PROMETHAZINE HYDROCHLORIDE [Suspect]
     Active Substance: PROMETHAZINE HYDROCHLORIDE
     Dosage: 25 MILLIGRAM, HS (25 MG, DAILY, AT NIGHT)
     Route: 065
  29. FERROUS FUMARATE [Suspect]
     Active Substance: FERROUS FUMARATE
     Indication: Anaemia
     Dosage: 420 MILLIGRAM, QD (420 MG PER DAY,MORNING AND NIGHT )
     Route: 048
  30. FERROUS FUMARATE [Suspect]
     Active Substance: FERROUS FUMARATE
     Dosage: 210 MILLIGRAM, BID, (210 MG, Q12H, MORNING AND NIGHT)
     Route: 048
  31. FERROUS FUMARATE [Suspect]
     Active Substance: FERROUS FUMARATE
     Dosage: 840 MILLIGRAM, QD( 840 MILLIGRAM,ONCE A DAY ), MORNING AND NIGHT
     Route: 048
  32. FERROUS FUMARATE [Suspect]
     Active Substance: FERROUS FUMARATE
     Dosage: 420 MILLIGRAM, QD (420 MILLIGRAM, DAILY,MORNING AND NIGHT)
     Route: 065
  33. FERROUS FUMARATE [Suspect]
     Active Substance: FERROUS FUMARATE
     Dosage: 210 MILLIGRAM, QD (210 MILLIGRAM, QD (MORNING AND NIGHT)
     Route: 048
  34. FERROUS FUMARATE [Suspect]
     Active Substance: FERROUS FUMARATE
     Dosage: 840 MILLIGRAM, QD (420 MILLIGRAM, DAILY,MORNING AND NIGHT)
     Route: 048
  35. FERROUS FUMARATE [Suspect]
     Active Substance: FERROUS FUMARATE
     Dosage: 210 MILLIGRAM (210 MG)
     Route: 048
  36. FOLIC ACID [Suspect]
     Active Substance: FOLIC ACID
     Indication: Folate deficiency
     Dosage: 5 MILLIGRAM, QD (5 MILLIGRAM, DAILY, MORNING)
     Route: 048
  37. FOLIC ACID [Suspect]
     Active Substance: FOLIC ACID
     Dosage: 5 MILLIGRAM, AM (5 MILLIGRAM, DAILY,MORNING)
     Route: 065
  38. IRON [Suspect]
     Active Substance: IRON
     Indication: Anaemia
     Dosage: 420 MILLIGRAM, QD,~210 MG, BID
     Route: 048

REACTIONS (3)
  - Autoscopy [Unknown]
  - Seizure [Unknown]
  - Overdose [Unknown]
